FAERS Safety Report 5264346-X (Version None)
Quarter: 2007Q1

REPORT INFORMATION
  Report Type: 
  Country: None (occurrence: None)
  Receive Date: 20061213
  Receipt Date: 20050222
  Transmission Date: 20070707
  Serious: Yes (Other)
  Sender: FDA-Public Use
  Company Number: 2005UW02934

PATIENT
  Age: 66 Year
  Sex: Male
  Weight: 68.038 kg

DRUGS (2)
  1. IRESSA [Suspect]
     Indication: NON-SMALL CELL LUNG CANCER
     Dates: end: 20050218
  2. BIAXIN [Suspect]
     Indication: UPPER RESPIRATORY TRACT INFECTION
     Dosage: 1000 MG
     Dates: end: 20050219

REACTIONS (2)
  - RASH [None]
  - UPPER RESPIRATORY TRACT INFECTION [None]
